FAERS Safety Report 9234054 (Version 2)
Quarter: 2013Q2

REPORT INFORMATION
  Report Type: Report from Study
  Country: FR (occurrence: FR)
  Receive Date: 20130416
  Receipt Date: 20130418
  Transmission Date: 20140414
  Serious: Yes (Other)
  Sender: FDA-Public Use
  Company Number: FR-GILEAD-2013-0073238

PATIENT
  Age: 50 Year
  Sex: Female

DRUGS (5)
  1. EFAVIRENZ/EMTRICITABINE/TENOFOVIR DISOPROXIL FUMARATE [Suspect]
     Indication: HIV INFECTION
     Dosage: UNK
     Route: 048
     Dates: start: 20120202, end: 20120907
  2. EFAVIRENZ/EMTRICITABINE/TENOFOVIR DISOPROXIL FUMARATE [Suspect]
     Dosage: UNK
     Dates: start: 20121011
  3. TRUVADA [Concomitant]
     Indication: HIV INFECTION
     Dosage: UNK
     Dates: start: 20120907, end: 20120920
  4. TRUVADA [Concomitant]
     Dosage: UNK
     Dates: start: 20120106, end: 20120202
  5. SUSTIVA [Concomitant]
     Indication: HIV INFECTION
     Dosage: UNK
     Dates: start: 20120106, end: 20120202

REACTIONS (2)
  - Transaminases increased [Recovered/Resolved with Sequelae]
  - Gamma-glutamyltransferase increased [Recovered/Resolved with Sequelae]
